FAERS Safety Report 8698055 (Version 3)
Quarter: 2013Q2

REPORT INFORMATION
  Report Type: Spontaneous
  Country: US (occurrence: US)
  Receive Date: 20120802
  Receipt Date: 20130401
  Transmission Date: 20140414
  Serious: Yes (Other)
  Sender: FDA-Public Use
  Company Number: US-PAR PHARMACEUTICAL, INC-2012SCPR004513

PATIENT
  Sex: 0

DRUGS (3)
  1. DIVALPROEX SODIUM [Suspect]
     Indication: EPILEPSY
     Dosage: UNK, UNKNOWN
     Route: 065
     Dates: start: 20120406
  2. LORATADINE [Concomitant]
     Indication: SNEEZING
     Dosage: 1 DF, / DAY
     Route: 048
     Dates: start: 201207
  3. LORATADINE [Concomitant]
     Indication: RHINORRHOEA

REACTIONS (10)
  - Fatigue [Unknown]
  - Dry throat [Unknown]
  - Chest pain [Unknown]
  - Dizziness [Unknown]
  - Insomnia [Unknown]
  - Headache [Unknown]
  - Pollakiuria [Unknown]
  - Diarrhoea [Unknown]
  - Nausea [Unknown]
  - Abnormal dreams [Unknown]
